FAERS Safety Report 4642258-X (Version None)
Quarter: 2005Q2

REPORT INFORMATION
  Report Type: 
  Country: None (occurrence: None)
  Receive Date: 20050421
  Receipt Date: 20050421
  Transmission Date: 20051028
  Serious: Yes (Other)
  Sender: FDA-Public Use
  Company Number: None

PATIENT
  Age: 52 Year
  Sex: Female
  Weight: 68.0396 kg

DRUGS (2)
  1. HYDROXYCHLOROQUINE SULFATE [Suspect]
     Indication: RHEUMATOID ARTHRITIS
     Dosage: 2 TABS /DAILY MOUTH
     Dates: start: 20050311, end: 20050411
  2. NAPROXEN SODIUM [Suspect]
     Indication: RHEUMATOID ARTHRITIS
     Dosage: 4 TABS/DAILY MOUTH
     Dates: start: 20040308, end: 20050411

REACTIONS (3)
  - ACNE [None]
  - RASH [None]
  - SKIN EXFOLIATION [None]
